FAERS Safety Report 17454327 (Version 1)
Quarter: 2020Q1

REPORT INFORMATION
  Report Type: Spontaneous
  Country: US (occurrence: US)
  Receive Date: 20200224
  Receipt Date: 20200224
  Transmission Date: 20200409
  Serious: Yes (Hospitalization, Disabling)
  Sender: FDA-Public Use
  Company Number: None

PATIENT
  Age: 47 Year
  Sex: Male
  Weight: 101.25 kg

DRUGS (11)
  1. CLONAZEPAM. [Suspect]
     Active Substance: CLONAZEPAM
     Indication: PANIC ATTACK
     Dosage: ?          QUANTITY:1 TABLET(S);?
     Route: 048
  2. ATIVAN [Suspect]
     Active Substance: LORAZEPAM
  3. LAMICTAL [Concomitant]
     Active Substance: LAMOTRIGINE
  4. VITAMIN D3 [Concomitant]
     Active Substance: CHOLECALCIFEROL
  5. CHAMOMILE TEA [Concomitant]
     Active Substance: MATRICARIA RECUTITA
  6. OMEGA 3 OIL [Concomitant]
  7. CLONAZEPAM. [Suspect]
     Active Substance: CLONAZEPAM
     Indication: INSOMNIA
     Dosage: ?          QUANTITY:1 TABLET(S);?
     Route: 048
  8. CLONAZEPAM. [Suspect]
     Active Substance: CLONAZEPAM
     Indication: ANXIETY
     Dosage: ?          QUANTITY:1 TABLET(S);?
     Route: 048
  9. ALBUTEROL. [Concomitant]
     Active Substance: ALBUTEROL
  10. VITAMIN B COMPLEX [Concomitant]
     Active Substance: CYANOCOBALAMIN\DEXPANTHENOL\NIACINAMIDE\PYRIDOXINE HYDROCHLORIDE\RIBOFLAVIN 5^-PHOSPHATE SODIUM\THIAMINE HYDROCHLORIDE\VITAMIN B COMPLEX
  11. ZOLOFT [Concomitant]
     Active Substance: SERTRALINE HYDROCHLORIDE

REACTIONS (27)
  - Nightmare [None]
  - Balance disorder [None]
  - Photosensitivity reaction [None]
  - Amnesia [None]
  - Tremor [None]
  - Confusional state [None]
  - Fatigue [None]
  - Withdrawal syndrome [None]
  - Pain [None]
  - Hyperacusis [None]
  - Diarrhoea [None]
  - Dyskinesia [None]
  - Hypertension [None]
  - Asthenia [None]
  - Muscle spasms [None]
  - Dizziness [None]
  - Headache [None]
  - Abdominal distension [None]
  - Muscle tightness [None]
  - Dyspnoea [None]
  - Tinnitus [None]
  - Insomnia [None]
  - Panic attack [None]
  - Anxiety [None]
  - Depression [None]
  - Tachycardia [None]
  - Disturbance in attention [None]

NARRATIVE: CASE EVENT DATE: 20200124
